FAERS Safety Report 12215314 (Version 6)
Quarter: 2016Q3

REPORT INFORMATION
  Report Type: Spontaneous
  Country: CA (occurrence: CA)
  Receive Date: 20160328
  Receipt Date: 20160928
  Transmission Date: 20161109
  Serious: Yes (Other)
  Sender: FDA-Public Use
  Company Number: CA-PFIZER INC-2016171322

PATIENT
  Age: 73 Year
  Sex: Male

DRUGS (19)
  1. ENBREL [Suspect]
     Active Substance: ETANERCEPT
     Indication: RHEUMATOID ARTHRITIS
     Dosage: UNK
  2. METHOTREXATE SODIUM. [Suspect]
     Active Substance: METHOTREXATE SODIUM
     Indication: RHEUMATOID ARTHRITIS
     Dosage: 25 MG, WEEKLY
     Route: 058
  3. ASA [Concomitant]
     Active Substance: ASPIRIN
     Dosage: 325 MG, OCCASIONALLY
  4. PLAQUENIL [Suspect]
     Active Substance: HYDROXYCHLOROQUINE SULFATE
     Dosage: 200 MG, 2X/DAY
     Dates: start: 201111, end: 201204
  5. INDOMETHACIN. [Concomitant]
     Active Substance: INDOMETHACIN
     Dosage: UNK
  6. METOPROLOL. [Concomitant]
     Active Substance: METOPROLOL
     Dosage: 75 MG, 2X/DAY
  7. BISOPROLOL [Concomitant]
     Active Substance: BISOPROLOL
     Dosage: 5 MG, DAILY
  8. LAX-A-DAY [Concomitant]
     Dosage: OCCASIONALLY
  9. VITAMIN B12 [Concomitant]
     Active Substance: CYANOCOBALAMIN
     Dosage: 1200 UG, 1 TABLET 1 TIME PER DAY
     Dates: end: 20160321
  10. SULFASALAZINE. [Suspect]
     Active Substance: SULFASALAZINE
     Indication: RHEUMATOID ARTHRITIS
     Dosage: 500 MG, 2X/DAY
  11. ARAVA [Suspect]
     Active Substance: LEFLUNOMIDE
     Dosage: 20 MG, ON MONDAY-WEDNESDAY-FRIDAY
  12. PENNSAID [Concomitant]
     Active Substance: DICLOFENAC SODIUM
     Dosage: UNK
  13. OXYCOCET [Concomitant]
     Active Substance: ACETAMINOPHEN\OXYCODONE HYDROCHLORIDE
     Dosage: 2 TABLETS, 4-5 TIMES PER WEEK
  14. NAPRELAN [Concomitant]
     Active Substance: NAPROXEN SODIUM
     Dosage: 1000 MG, 1-2 TIMES PER MONTH
  15. ENDOCET [Concomitant]
     Active Substance: ACETAMINOPHEN\OXYCODONE HYDROCHLORIDE
     Dosage: 5 + 325MG 1 TABLET 2X/DAY AS NEEDED
     Dates: end: 20160321
  16. PREDNISONE. [Concomitant]
     Active Substance: PREDNISONE
     Dosage: 1 MG, DAILY
  17. OMEGA 3 [Concomitant]
     Active Substance: OMEGA-3 FATTY ACIDS
     Dosage: 12000 MG, DAILY
  18. ARAVA [Suspect]
     Active Substance: LEFLUNOMIDE
     Dosage: 10 MG, 4X/WEEK
  19. FOLIC ACID. [Concomitant]
     Active Substance: FOLIC ACID
     Dosage: 5 MG, 3X/WEEK

REACTIONS (9)
  - Cardiac failure congestive [Not Recovered/Not Resolved]
  - Drug effect incomplete [Unknown]
  - Dyspnoea [Unknown]
  - Sensitivity to weather change [Unknown]
  - Eye disorder [Unknown]
  - Lung disorder [Unknown]
  - Abdominal discomfort [Unknown]
  - Pulmonary toxicity [Unknown]
  - Drug ineffective [Unknown]

NARRATIVE: CASE EVENT DATE: 201204
